FAERS Safety Report 7628322-1 (Version None)
Quarter: 2011Q3

REPORT INFORMATION
  Report Type: 
  Country: None (occurrence: None)
  Receive Date: 20110714
  Receipt Date: 20110629
  Transmission Date: 20111222
  Serious: Yes (Other)
  Sender: FDA-Public Use
  Company Number: TPA2011A03806

PATIENT
  Age: 82 Year
  Sex: Female

DRUGS (1)
  1. ADENURIC (FEBUXOSTAT) [Suspect]
     Indication: HYPERURICAEMIA
     Dosage: 80 MG (80 MG, 1 IN 1 D) ORAL
     Route: 048
     Dates: start: 20110616, end: 20110623

REACTIONS (3)
  - HYPOTENSION [None]
  - ARRHYTHMIA [None]
  - CIRCULATORY COLLAPSE [None]
